FAERS Safety Report 21363529 (Version 4)
Quarter: 2023Q1

REPORT INFORMATION
  Report Type: Spontaneous
  Country: US (occurrence: US)
  Receive Date: 20220922
  Receipt Date: 20230307
  Transmission Date: 20230417
  Serious: Yes (Death)
  Sender: FDA-Public Use
  Company Number: US-002147023-NVSC2022US214598

PATIENT
  Age: 73 Year
  Sex: Male
  Weight: 86.7 kg

DRUGS (2)
  1. PLUVICTO [Suspect]
     Active Substance: LUTETIUM LU-177 VIPIVOTIDE TETRAXETAN
     Indication: Hormone-refractory prostate cancer
     Dosage: 200 MCI EVERY 6 WEEKS
     Route: 042
     Dates: start: 20220629
  2. PLUVICTO [Suspect]
     Active Substance: LUTETIUM LU-177 VIPIVOTIDE TETRAXETAN
     Dosage: 200 MCI EVERY 6 WEEKS
     Route: 065
     Dates: start: 20220810, end: 20221004

REACTIONS (4)
  - Death [Fatal]
  - Prostatic specific antigen increased [Unknown]
  - Ill-defined disorder [Unknown]
  - Drug ineffective [Unknown]

NARRATIVE: CASE EVENT DATE: 20221015
